FAERS Safety Report 20348436 (Version 1)
Quarter: 2022Q1

REPORT INFORMATION
  Report Type: Spontaneous
  Country: GB (occurrence: GB)
  Receive Date: 20220119
  Receipt Date: 20220119
  Transmission Date: 20220423
  Serious: Yes (Other)
  Sender: FDA-Public Use
  Company Number: None

PATIENT
  Age: 70 Year

DRUGS (7)
  1. SINEMET [Suspect]
     Active Substance: CARBIDOPA\LEVODOPA
     Indication: Parkinson^s disease
     Dosage: 300 MILLIGRAM EVERY 3 HOURS 24/7 OR 8 TIMES PER DAY;
  2. SINEMET [Suspect]
     Active Substance: CARBIDOPA\LEVODOPA
     Dosage: 200 MILLIGRAM EVERY 3 HOURS 24/7 OR 8 TIMES PER DAY;
  3. SINEMET [Suspect]
     Active Substance: CARBIDOPA\LEVODOPA
     Dosage: 250 MILLIGRAM 8 TIMES DAILY;
  4. AMANTADINE [Suspect]
     Active Substance: AMANTADINE
     Indication: Dyskinesia
     Dosage: 137 MILLIGRAM, 1X / DAY AT NIGHT
  5. AMANTADINE [Suspect]
     Active Substance: AMANTADINE
     Dosage: 135 MILLIGRAM
  6. AMANTADINE [Suspect]
     Active Substance: AMANTADINE
     Dosage: 68 MG AT BEDTIME AND 1 CAPSULE AT 11:00 AM
  7. ONGENTYS [Suspect]
     Active Substance: OPICAPONE
     Indication: Parkinson^s disease
     Dosage: 50 MILLIGRAM, 1X / DAY (ON EMPTY STOMACH)
     Route: 065
     Dates: start: 202010

REACTIONS (5)
  - Dyskinesia [Unknown]
  - Fatigue [Unknown]
  - Sleep disorder [Unknown]
  - Drug ineffective [Unknown]
  - Micturition urgency [Unknown]
